FAERS Safety Report 7197295-0 (Version None)
Quarter: 2010Q4

REPORT INFORMATION
  Report Type: 
  Country: None (occurrence: None)
  Receive Date: 20101227
  Receipt Date: 20101122
  Transmission Date: 20110411
  Serious: Yes (Hospitalization)
  Sender: FDA-Public Use
  Company Number: DE-AMGEN-DEUCT2010002866

PATIENT

DRUGS (10)
  1. ENBREL [Suspect]
     Indication: RHEUMATOID ARTHRITIS
     Dosage: 50 MG, QWK
     Route: 058
     Dates: start: 20090610
  2. LERCANIDIPINE HYDROCHLORIDE [Concomitant]
     Dosage: 20MG, FREQUENCY UNKNOWN
  3. SPIRIVA [Concomitant]
     Dosage: 18A?G, FREQUENCY UNKNOWN
  4. OMEPRAZOLE [Concomitant]
     Dosage: UNKNOWN
  5. ISONIAZID [Concomitant]
  6. DIOVAN [Concomitant]
     Dosage: 80MG, FREQUENCY UNKNOWN
  7. LEVOTHYROXINE [Concomitant]
     Dosage: UNKNOWN
  8. IBUPROFEN [Concomitant]
  9. FORMOTEROL FUMARATE [Concomitant]
     Dosage: 12A?G, FREQUENCY UNKNOWN
  10. GLUCOCORTICOIDS [Concomitant]

REACTIONS (1)
  - OVARIAN ADENOMA [None]
